FAERS Safety Report 9690450 (Version 1)
Quarter: 2013Q4

REPORT INFORMATION
  Report Type: Spontaneous
  Country: US (occurrence: None)
  Receive Date: 20131114
  Receipt Date: 20131114
  Transmission Date: 20140711
  Serious: Yes (Other)
  Sender: FDA-Public Use
  Company Number: None

PATIENT
  Age: 36 None
  Sex: Female
  Weight: 60 kg

DRUGS (5)
  1. AMBISOME [Suspect]
     Indication: FUNGAL INFECTION
     Dosage: IV INFUSION FOR OVER 2 HOURS
     Route: 042
     Dates: start: 20130907
  2. MAGNESIUM OXIDE [Concomitant]
  3. PANTOPRAZOLE [Concomitant]
  4. VANCOMYCIN [Concomitant]
  5. VORICONAZOLE [Concomitant]

REACTIONS (6)
  - Chest discomfort [None]
  - Chest discomfort [None]
  - Nausea [None]
  - Chills [None]
  - Heart rate increased [None]
  - Headache [None]
